FAERS Safety Report 10706249 (Version 1)
Quarter: 2015Q1

REPORT INFORMATION
  Report Type: Spontaneous
  Country: HR (occurrence: HR)
  Receive Date: 20150113
  Receipt Date: 20150113
  Transmission Date: 20150721
  Serious: Yes (Other)
  Sender: FDA-Public Use
  Company Number: HR-RANBAXY-2014R1-91336

PATIENT
  Age: 13 Year
  Sex: Female

DRUGS (2)
  1. CADMIUM [Suspect]
     Active Substance: CADMIUM
     Indication: PRODUCT USED FOR UNKNOWN INDICATION
     Route: 065
  2. ACETAMINOPHEN. [Suspect]
     Active Substance: ACETAMINOPHEN
     Indication: RESPIRATORY TRACT INFECTION
     Dosage: UNK
     Route: 065

REACTIONS (3)
  - Nephropathy toxic [None]
  - Tubulointerstitial nephritis [Recovering/Resolving]
  - Blood cadmium increased [None]
